FAERS Safety Report 4829986-8 (Version None)
Quarter: 2005Q4

REPORT INFORMATION
  Report Type: 
  Country: None (occurrence: None)
  Receive Date: 20051114
  Receipt Date: 20051101
  Transmission Date: 20060501
  Serious: Yes (Hospitalization, Disabling, Other)
  Sender: FDA-Public Use
  Company Number: 2005125484

PATIENT
  Age: 59 Year
  Sex: Female

DRUGS (2)
  1. NICORETTE [Suspect]
     Indication: SMOKING CESSATION THERAPY
     Dosage: UNSPECIFIED, TRANSDERMAL
     Route: 062
     Dates: start: 20050101, end: 20050101
  2. NICORETTE [Suspect]
     Indication: SMOKING CESSATION THERAPY
     Dosage: (TWO WEEKS DOSE) FOR APPROX A MONTH, ORAL TOPICAL
     Route: 048
     Dates: start: 20050510, end: 20050101

REACTIONS (10)
  - DIFFICULTY IN WALKING [None]
  - DIZZINESS [None]
  - FALL [None]
  - HEAD INJURY [None]
  - HYPOAESTHESIA [None]
  - MOVEMENT DISORDER [None]
  - PERIPHERAL NERVE PALSY [None]
  - RASH GENERALISED [None]
  - TONGUE PARALYSIS [None]
  - VERTIGO [None]
